FAERS Safety Report 4569264-8 (Version None)
Quarter: 2005Q1

REPORT INFORMATION
  Report Type: 
  Country: None (occurrence: None)
  Receive Date: 20050203
  Receipt Date: 20050124
  Transmission Date: 20050727
  Serious: Yes (Other)
  Sender: FDA-Public Use
  Company Number: PHNU2005DE00662

PATIENT
  Age: 59 Year
  Sex: Male

DRUGS (2)
  1. DIOVAN [Suspect]
     Dosage: UNK, UNK
     Route: 048
  2. DIOVAN [Suspect]
     Dosage: 160 MG/D
     Route: 048

REACTIONS (2)
  - ANGINA PECTORIS [None]
  - MYOCARDIAL INFARCTION [None]
